FAERS Safety Report 6411033-8 (Version None)
Quarter: 2009Q4

REPORT INFORMATION
  Report Type: 
  Country: None (occurrence: None)
  Receive Date: 20091022
  Receipt Date: 20091014
  Transmission Date: 20100525
  Serious: Yes (Other)
  Sender: FDA-Public Use
  Company Number: JP-BAXTER-2009BH016251

PATIENT
  Age: 22 Year
  Sex: Male

DRUGS (7)
  1. ENDOXAN BAXTER [Suspect]
     Indication: LYMPHOMA
     Route: 065
  2. ENDOXAN BAXTER [Suspect]
     Indication: EPSTEIN-BARR VIRUS INFECTION
     Route: 065
  3. PREDONINE [Suspect]
     Indication: LYMPHOMA
  4. PREDONINE [Suspect]
     Indication: EPSTEIN-BARR VIRUS INFECTION
  5. METHYLPREDNISOLONE [Concomitant]
     Indication: DRUG USE FOR UNKNOWN INDICATION
     Route: 065
  6. CYCLOSPORINE [Concomitant]
     Indication: DRUG USE FOR UNKNOWN INDICATION
     Route: 065
  7. MIZORIBINE [Concomitant]
     Indication: DRUG USE FOR UNKNOWN INDICATION
     Route: 065

REACTIONS (1)
  - THYROID CANCER [None]
